FAERS Safety Report 5099593-3 (Version None)
Quarter: 2006Q3

REPORT INFORMATION
  Report Type: 
  Country: None (occurrence: None)
  Receive Date: 20060906
  Receipt Date: 20060821
  Transmission Date: 20061208
  Serious: Yes (Hospitalization, Other)
  Sender: FDA-Public Use
  Company Number: 2006100504

PATIENT
  Age: 75 Year
  Sex: Male

DRUGS (13)
  1. GEODON [Suspect]
     Indication: DRUG USE FOR UNKNOWN INDICATION
     Dosage: 20 MG (1 IN 1 D), ORAL
     Route: 048
     Dates: start: 20021115
  2. ZOLOFT [Suspect]
     Indication: DRUG USE FOR UNKNOWN INDICATION
     Dosage: SEE IMAGE
     Dates: start: 20021115
  3. ZOLOFT [Suspect]
     Indication: DRUG USE FOR UNKNOWN INDICATION
     Dosage: SEE IMAGE
     Dates: start: 20021118
  4. LORAZEPAM [Suspect]
     Indication: DRUG USE FOR UNKNOWN INDICATION
     Dosage: 1 MG
  5. ARICEPT [Suspect]
     Indication: DRUG USE FOR UNKNOWN INDICATION
     Dosage: 10 MG (1 IN 1 D), ORAL
     Route: 048
     Dates: start: 20021113
  6. WELLBUTRIN SR [Suspect]
     Indication: DRUG USE FOR UNKNOWN INDICATION
     Dosage: 150 MG (1 IN 1 D), ORAL
     Route: 048
  7. REMERON [Suspect]
     Indication: DRUG USE FOR UNKNOWN INDICATION
     Dosage: 15 MG (1 IN 1 D)
  8. EFFEXOR [Suspect]
     Indication: DRUG USE FOR UNKNOWN INDICATION
     Dates: start: 20021113
  9. PLAVIX [Concomitant]
  10. ASPIRIN [Concomitant]
  11. TOPROL-XL [Concomitant]
  12. DIGOXIN [Concomitant]
  13. ZOCOR [Concomitant]

REACTIONS (10)
  - CEREBROVASCULAR ACCIDENT [None]
  - DEHYDRATION [None]
  - DYSKINESIA [None]
  - EXTRAPYRAMIDAL DISORDER [None]
  - LETHARGY [None]
  - LOSS OF CONSCIOUSNESS [None]
  - MUSCLE TWITCHING [None]
  - ORTHOSTATIC HYPOTENSION [None]
  - SYNCOPE [None]
  - TREMOR [None]
